FAERS Safety Report 14492596 (Version 3)
Quarter: 2018Q1

REPORT INFORMATION
  Report Type: Report from Study
  Country: CA (occurrence: CA)
  Receive Date: 20180206
  Receipt Date: 20180312
  Transmission Date: 20180509
  Serious: Yes (Death, Hospitalization, Other)
  Sender: FDA-Public Use
  Company Number: PHHO2017CA009499

PATIENT
  Age: 77 Year
  Sex: Male
  Weight: 100.7 kg

DRUGS (20)
  1. HYDROMORPHONE [Concomitant]
     Active Substance: HYDROMORPHONE
     Dosage: 1 MG, Q2H, PRN
     Route: 048
  2. INNOHEP [Concomitant]
     Active Substance: TINZAPARIN SODIUM
     Indication: THROMBOSIS PROPHYLAXIS
     Dosage: 16000 IU, QD
     Route: 058
     Dates: start: 20171017
  3. LAX-A-DAY [Concomitant]
     Indication: CONSTIPATION PROPHYLAXIS
     Dosage: 17 G, QD
     Route: 048
     Dates: start: 20170624
  4. FENTANYL. [Concomitant]
     Active Substance: FENTANYL
     Indication: PAIN
     Dosage: 37 UG, Q3 DAYS
     Route: 062
     Dates: start: 20171124
  5. BISOPROLOL [Concomitant]
     Active Substance: BISOPROLOL
     Indication: ARTERIOSCLEROSIS
     Dosage: 2.5 MG, QD
     Route: 048
     Dates: start: 20100714
  6. NTG [Concomitant]
     Active Substance: NITROGLYCERIN
     Indication: ARTERIOSCLEROSIS
     Dosage: 0.4 MG, PRN
     Route: 058
     Dates: start: 20100714
  7. ACZ885 [Suspect]
     Active Substance: CANAKINUMAB
     Indication: CARDIOVASCULAR EVENT PROPHYLAXIS
     Dosage: 50 MG, QUARTERLY
     Route: 058
     Dates: start: 20170203, end: 20170427
  8. BIOCALCIUM D [Concomitant]
     Indication: PROPHYLAXIS
     Dosage: 400 UI BID
     Route: 048
     Dates: start: 20171114
  9. PANTOLOC [Concomitant]
     Active Substance: PANTOPRAZOLE SODIUM
     Indication: PROPHYLAXIS
     Dosage: 40 MG, QD
     Route: 048
     Dates: start: 20151026, end: 20170612
  10. VALSARTAN 1 A PHARMA [Suspect]
     Active Substance: VALSARTAN
     Indication: ARTERIOSCLEROSIS
     Dosage: 40 MG, QD
     Route: 048
     Dates: start: 20160902, end: 20170612
  11. ASAPHEN [Concomitant]
     Active Substance: ASPIRIN
     Indication: ARTERIOSCLEROSIS
     Dosage: 80 MG, QD
     Route: 048
     Dates: start: 20100714, end: 20170612
  12. HYDROCHLOROTHIAZIDE. [Concomitant]
     Active Substance: HYDROCHLOROTHIAZIDE
     Indication: HYPERTENSION
     Dosage: 12.5 MG, QD
     Route: 048
     Dates: start: 20121102, end: 20170612
  13. ATIVAN [Concomitant]
     Active Substance: LORAZEPAM
     Indication: PROPHYLAXIS
     Dosage: 6.5 MG, PRN
     Route: 048
     Dates: start: 20170725, end: 20170808
  14. MONOCOR [Concomitant]
     Active Substance: BISOPROLOL FUMARATE
     Indication: ARTERIOSCLEROSIS
     Dosage: 2.5 MG, QD
     Route: 048
     Dates: start: 20100714, end: 20170612
  15. ISOSORBIDE. [Concomitant]
     Active Substance: ISOSORBIDE
     Indication: ARTERIOSCLEROSIS
     Dosage: 60 MG, QD
     Route: 048
     Dates: start: 20171013
  16. HYDROMORPHONE [Concomitant]
     Active Substance: HYDROMORPHONE
     Indication: PAIN
     Dosage: 3 MG, BID
     Route: 048
     Dates: start: 20171020
  17. PAMIDRONATE [Concomitant]
     Active Substance: PAMIDRONATE DISODIUM
     Indication: PROPHYLAXIS
     Dosage: 90 MG, Q4W
     Route: 042
     Dates: start: 20171116
  18. CRESTOR [Concomitant]
     Active Substance: ROSUVASTATIN CALCIUM
     Indication: DYSPEPSIA
     Dosage: 2.5 MG, QD
     Route: 048
     Dates: start: 20140621, end: 20170612
  19. IRBESARTAN. [Concomitant]
     Active Substance: IRBESARTAN
     Indication: HYPERTENSION
     Dosage: 150 MG, QD
     Route: 048
     Dates: start: 20170725
  20. DEXILANT [Concomitant]
     Active Substance: DEXLANSOPRAZOLE
     Indication: PROPHYLAXIS
     Dosage: 60 MG, QD
     Route: 048
     Dates: start: 20160316

REACTIONS (2)
  - Hyponatraemia [Recovered/Resolved]
  - Lung neoplasm malignant [Fatal]

NARRATIVE: CASE EVENT DATE: 20170608
